FAERS Safety Report 15246370 (Version 4)
Quarter: 2019Q2

REPORT INFORMATION
  Report Type: Spontaneous
  Country: US (occurrence: US)
  Receive Date: 20180806
  Receipt Date: 20190508
  Transmission Date: 20190711
  Serious: Yes (Other)
  Sender: FDA-Public Use
  Company Number: US-SA-2018SA210147

PATIENT
  Age: 14 Year
  Sex: Female

DRUGS (4)
  1. FABRAZYME [Suspect]
     Active Substance: AGALSIDASE BETA
     Indication: FABRY^S DISEASE
     Dosage: 50 MG, QOW,EVERY 2 WEEKS
     Route: 041
     Dates: start: 20180308
  2. FABRAZYME [Suspect]
     Active Substance: AGALSIDASE BETA
     Dosage: 55 MG, QOW
     Route: 041
     Dates: start: 20180308
  3. FABRAZYME [Suspect]
     Active Substance: AGALSIDASE BETA
     Dosage: 35 MG, QOW
     Route: 041
     Dates: start: 201803
  4. FABRAZYME [Suspect]
     Active Substance: AGALSIDASE BETA
     Dosage: 20 MG, QOW
     Route: 041
     Dates: start: 201803

REACTIONS (9)
  - Loss of consciousness [Unknown]
  - Constipation [Unknown]
  - Abdominal pain upper [Unknown]
  - Temperature intolerance [Unknown]
  - Burning sensation [Unknown]
  - Malaise [Unknown]
  - Pain in extremity [Unknown]
  - Underdose [Unknown]
  - Neuropathy peripheral [Unknown]

NARRATIVE: CASE EVENT DATE: 20180806
